FAERS Safety Report 19212408 (Version 3)
Quarter: 2021Q2

REPORT INFORMATION
  Report Type: Spontaneous
  Country: CH (occurrence: CH)
  Receive Date: 20210504
  Receipt Date: 20210510
  Transmission Date: 20210717
  Serious: Yes (Death, Life-Threatening, Hospitalization)
  Sender: FDA-Public Use
  Company Number: CH-MYLANLABS-2021M1026306

PATIENT
  Age: 55 Year
  Sex: Female

DRUGS (7)
  1. NIMODIPINE. [Concomitant]
     Active Substance: NIMODIPINE
     Indication: REVERSIBLE CEREBRAL VASOCONSTRICTION SYNDROME
     Dosage: 30MG TID ORALLY
     Route: 048
  2. ARIPIPRAZOLE. [Suspect]
     Active Substance: ARIPIPRAZOLE
     Indication: BIPOLAR DISORDER
     Dosage: UNK
     Route: 065
     Dates: end: 20160801
  3. NIMODIPINE. [Concomitant]
     Active Substance: NIMODIPINE
     Dosage: DOSE INCREASED TO 60MG EVERY 4 H
     Route: 048
  4. BUPRENORPHINE. [Concomitant]
     Active Substance: BUPRENORPHINE
     Indication: BIPOLAR DISORDER
     Dosage: UNK
     Route: 065
  5. TUAMINOHEPTANE [Suspect]
     Active Substance: TUAMINOHEPTANE
     Indication: VASOCONSTRICTION
     Dosage: NASAL DECONGESTANT SPRAY
     Route: 045
  6. NOREPINEPHRINE. [Suspect]
     Active Substance: NOREPINEPHRINE
     Indication: MEAN ARTERIAL PRESSURE DECREASED
     Dosage: UNK
     Route: 065
  7. VENLAFAXINE [Suspect]
     Active Substance: VENLAFAXINE HYDROCHLORIDE
     Indication: BIPOLAR DISORDER
     Dosage: UNK
     Route: 065

REACTIONS (6)
  - Reversible cerebral vasoconstriction syndrome [Fatal]
  - Haemorrhagic stroke [Not Recovered/Not Resolved]
  - Brain herniation [Fatal]
  - Brain oedema [Not Recovered/Not Resolved]
  - Coma [Not Recovered/Not Resolved]
  - Cerebral ischaemia [Not Recovered/Not Resolved]

NARRATIVE: CASE EVENT DATE: 20160801
